FAERS Safety Report 20340302 (Version 1)
Quarter: 2022Q1

REPORT INFORMATION
  Report Type: Spontaneous
  Country: US (occurrence: US)
  Receive Date: 20220117
  Receipt Date: 20220117
  Transmission Date: 20220423
  Serious: No
  Sender: FDA-Public Use
  Company Number: US-JNJFOC-20220114502

PATIENT
  Age: 52 Year
  Sex: Male
  Weight: 74.910 kg

DRUGS (2)
  1. XARELTO [Suspect]
     Active Substance: RIVAROXABAN
     Indication: Deep vein thrombosis
     Route: 048
     Dates: start: 201904
  2. XARELTO [Suspect]
     Active Substance: RIVAROXABAN
     Dosage: PRESCRIPTION NUMBER-6934503
     Route: 048
     Dates: start: 202007

REACTIONS (6)
  - Hypoaesthesia [Unknown]
  - Epistaxis [Unknown]
  - Expired product administered [Unknown]
  - Wrong technique in product usage process [Unknown]
  - Off label use [Unknown]
  - Inappropriate schedule of product administration [Unknown]

NARRATIVE: CASE EVENT DATE: 20220105
